FAERS Safety Report 15432120 (Version 1)
Quarter: 2018Q3

REPORT INFORMATION
  Report Type: Other
  Country: GR (occurrence: GR)
  Receive Date: 20180926
  Receipt Date: 20180926
  Transmission Date: 20181010
  Serious: Yes (Hospitalization, Other)
  Sender: FDA-Public Use
  Company Number: GR-B. BRAUN MEDICAL INC.-2055377

PATIENT
  Sex: Female
  Weight: 1.15 kg

DRUGS (6)
  1. AMOXICILLIN. [Suspect]
     Active Substance: AMOXICILLIN
     Route: 064
  2. METRONIDAZOLE INJECTION USP (5 MG/ML) IN PAB? PLASTIC CONTAINER (NDA 0 [Suspect]
     Active Substance: METRONIDAZOLE
     Indication: FOETAL EXPOSURE DURING PREGNANCY
     Route: 064
  3. CEFUROXIME. [Suspect]
     Active Substance: CEFUROXIME
     Route: 064
  4. LEVOTHYROXINE. [Suspect]
     Active Substance: LEVOTHYROXINE
     Route: 064
  5. BETAMETHASONE. [Suspect]
     Active Substance: BETAMETHASONE
     Route: 064
  6. BETADINE [Suspect]
     Active Substance: POVIDONE-IODINE
     Route: 064

REACTIONS (1)
  - Foetal non-stress test abnormal [None]
